FAERS Safety Report 6115852-7 (Version None)
Quarter: 2009Q1

REPORT INFORMATION
  Report Type: 
  Country: None (occurrence: None)
  Receive Date: 20090311
  Receipt Date: 20090304
  Transmission Date: 20090719
  Serious: Yes (Death)
  Sender: FDA-Public Use
  Company Number: 2009-192550-NL

PATIENT
  Age: 49 Year
  Sex: Male

DRUGS (9)
  1. MIRTAZAPINE [Suspect]
     Indication: DEPRESSION
     Dosage: 45 MG QD ORAL
     Route: 048
     Dates: start: 20070101
  2. PAXIL [Suspect]
     Indication: DEPRESSION
     Dosage: 30 MG BID ORAL
     Route: 048
     Dates: start: 20050101
  3. ETHANOL [Suspect]
  4. LORAZEPAM [Suspect]
     Indication: ANXIETY
     Dosage: 2 MG BID ORAL
     Route: 048
     Dates: start: 20070101
  5. CYCLOBENZAPRINE HCI TABLETS [Suspect]
     Dosage: ORAL
     Route: 048
  6. CLONAZEPAM TABLET-SOLUBALE [Suspect]
     Indication: AGORAPHOBIA
     Dosage: 2 MG PRN ORAL
     Route: 048
     Dates: start: 20070101
  7. METOPROLOL TARTRATE [Suspect]
     Dosage: ORAL
     Route: 048
  8. QUETIAPINE FUMARAE TABLET [Suspect]
     Indication: PSYCHOTIC DISORDER
     Dosage: 300 MG QD ORAL
     Dates: start: 20050101
  9. TRAMADOL HCL [Suspect]
     Dosage: ORAL
     Route: 048

REACTIONS (1)
  - COMPLETED SUICIDE [None]
